FAERS Safety Report 4980194-X (Version None)
Quarter: 2006Q2

REPORT INFORMATION
  Report Type: 
  Country: None (occurrence: None)
  Receive Date: 20060424
  Receipt Date: 20060411
  Transmission Date: 20061013
  Serious: Yes (Other)
  Sender: FDA-Public Use
  Company Number: PHBS2006DK05636

PATIENT
  Age: 10 Year
  Sex: Male

DRUGS (1)
  1. RITALIN [Suspect]
     Indication: ATTENTION DEFICIT/HYPERACTIVITY DISORDER
     Dosage: 10 MG, BID
     Route: 048
     Dates: start: 20051114, end: 20060125

REACTIONS (3)
  - AGGRESSION [None]
  - DEPRESSIVE SYMPTOM [None]
  - GASTROINTESTINAL DISORDER [None]
